FAERS Safety Report 23813912 (Version 1)
Quarter: 2024Q2

REPORT INFORMATION
  Report Type: Spontaneous
  Country: CA (occurrence: CA)
  Receive Date: 20240503
  Receipt Date: 20240503
  Transmission Date: 20240716
  Serious: Yes (Other)
  Sender: FDA-Public Use
  Company Number: CA-AstraZeneca-2024A096345

PATIENT
  Sex: Female

DRUGS (2)
  1. TRASTUZUMAB DERUXTECAN [Suspect]
     Active Substance: TRASTUZUMAB DERUXTECAN
     Indication: HER2 positive breast cancer
     Dosage: 315 MG, ONCE EVERY 3 WK
     Route: 042
  2. TRASTUZUMAB DERUXTECAN [Suspect]
     Active Substance: TRASTUZUMAB DERUXTECAN
     Dosage: 339 MG, ONCE EVERY 3 WK
     Route: 042

REACTIONS (5)
  - Hypersomnia [Unknown]
  - Toxicity to various agents [Unknown]
  - Abdominal discomfort [Unknown]
  - Constipation [Unknown]
  - Fatigue [Unknown]
